APPROVED DRUG PRODUCT: VENLAFAXINE HYDROCHLORIDE
Active Ingredient: VENLAFAXINE HYDROCHLORIDE
Strength: EQ 37.5MG BASE
Dosage Form/Route: CAPSULE, EXTENDED RELEASE;ORAL
Application: A200834 | Product #001 | TE Code: AB
Applicant: AUROBINDO PHARMA LIMITED
Approved: Apr 14, 2011 | RLD: No | RS: No | Type: RX